FAERS Safety Report 6530290 (Version 2)
Quarter: 2012Q4

REPORT INFORMATION
  Report Type: 
  Country: CA (occurrence: CA)
  Receive Date: 20080118
  Receipt Date: 20121025
  Transmission Date: 20130627
  Serious: Yes (Other)
  Sender: FDA-Public Use
  Company Number: PHHO2005CA07612

PATIENT
  Sex: Female

DRUGS (3)
  1. SANDOSTATIN (OCTREOTIDE ACETATE) [Suspect]
     Indication: CARCINOID SYNDROME
     Route: 058
     Dates: start: 20050503
  2. SANDOSTATIN LAR [Suspect]
     Indication: CARCINOID TUMOUR
     Dosage: 20 mg, QMO
     Route: 030
     Dates: start: 20050518
  3. COVERSYL                                /BEL/ [Concomitant]
     Indication: HYPERTENSION
     Dosage: 8 mg per day
     Route: 048

REACTIONS (7)
  - Haematochezia [Unknown]
  - Hypertension [Unknown]
  - Vein disorder [Recovering/Resolving]
  - Headache [Unknown]
  - Injection site pain [Unknown]
  - Abdominal pain [Recovered/Resolved]
  - Diarrhoea [Recovered/Resolved]
